FAERS Safety Report 7519386-4 (Version None)
Quarter: 2011Q2

REPORT INFORMATION
  Report Type: 
  Country: None (occurrence: None)
  Receive Date: 20110602
  Receipt Date: 20110524
  Transmission Date: 20111010
  Serious: Yes (Hospitalization)
  Sender: FDA-Public Use
  Company Number: US-ASTRAZENECA-2011SE31965

PATIENT
  Age: 633 Month
  Sex: Female

DRUGS (6)
  1. VICODAN [Concomitant]
  2. CYMBALTA [Concomitant]
  3. XANAX [Concomitant]
  4. NEXIUM [Suspect]
     Indication: GASTROOESOPHAGEAL REFLUX DISEASE
     Route: 048
     Dates: start: 20080101
  5. SEROQUEL [Suspect]
     Indication: BIPOLAR DISORDER
     Route: 048
     Dates: start: 20060101
  6. TRAZODONE HCL [Concomitant]

REACTIONS (4)
  - PNEUMONIA STAPHYLOCOCCAL [None]
  - LUNG ABSCESS [None]
  - PULMONARY OEDEMA [None]
  - DEMENTIA [None]
